FAERS Safety Report 14675972 (Version 1)
Quarter: 2018Q1

REPORT INFORMATION
  Report Type: Spontaneous
  Country: US (occurrence: US)
  Receive Date: 20180323
  Receipt Date: 20180323
  Transmission Date: 20180509
  Serious: Yes (Hospitalization, Disabling, Other)
  Sender: FDA-Public Use
  Company Number: None

PATIENT
  Age: 36 Year
  Sex: Female
  Weight: 90 kg

DRUGS (2)
  1. ALPROZOLAM [Suspect]
     Active Substance: ALPRAZOLAM
     Indication: INSOMNIA
     Dosage: ?          QUANTITY:1 CAPSULE(S);?
     Route: 048
  2. BENZOS WITH VALIUM [Concomitant]

REACTIONS (3)
  - Bedridden [None]
  - Malaise [None]
  - Toxicity to various agents [None]

NARRATIVE: CASE EVENT DATE: 20170801
